FAERS Safety Report 10563077 (Version 1)
Quarter: 2014Q4

REPORT INFORMATION
  Report Type: Spontaneous
  Country: ES (occurrence: ES)
  Receive Date: 20141104
  Receipt Date: 20141104
  Transmission Date: 20150529
  Serious: Yes (Other)
  Sender: FDA-Public Use
  Company Number: ES-PFIZER INC-2014302632

PATIENT
  Age: 58 Year
  Sex: Female

DRUGS (1)
  1. LYRICA [Suspect]
     Active Substance: PREGABALIN
     Indication: NEURALGIA
     Dosage: 150 MG, UNK
     Dates: start: 20090901, end: 20100720

REACTIONS (8)
  - Dysaesthesia [Recovered/Resolved]
  - Dermatitis [Recovered/Resolved]
  - Conjunctivitis [Recovered/Resolved]
  - Rhinitis [Recovered/Resolved]
  - Balance disorder [Recovered/Resolved]
  - Dry eye [Recovered/Resolved]
  - Gastrooesophageal reflux disease [Recovered/Resolved]
  - Burning sensation mucosal [Recovered/Resolved]

NARRATIVE: CASE EVENT DATE: 20091001
